FAERS Safety Report 25920240 (Version 2)
Quarter: 2025Q4

REPORT INFORMATION
  Report Type: Spontaneous
  Country: EU (occurrence: EU)
  Receive Date: 20251014
  Receipt Date: 20251028
  Transmission Date: 20260117
  Serious: No
  Sender: JAZZ
  Company Number: EU-JAZZ PHARMACEUTICALS-2025-BG-023806

PATIENT
  Age: 12 Year

DRUGS (5)
  1. CANNABIDIOL [Suspect]
     Active Substance: CANNABIDIOL
     Indication: Tuberous sclerosis complex
     Dosage: 25 MILLIGRAM PER KILOGRAM PER DAY
  2. CANNABIDIOL [Suspect]
     Active Substance: CANNABIDIOL
     Dosage: 20 MILLIGRAM PER KILOGRAM PER DAY
  3. VALPROATE [Concomitant]
     Active Substance: VALPROIC ACID
     Indication: Status epilepticus
     Dosage: UNK
  4. LAMOTRIGINE [Concomitant]
     Active Substance: LAMOTRIGINE
     Indication: Product used for unknown indication
     Dosage: 100 MILLIGRAM, BID
  5. CLOBAZAM [Concomitant]
     Active Substance: CLOBAZAM
     Indication: Product used for unknown indication
     Dosage: 10 MILLIGRAM, BID

REACTIONS (4)
  - Nausea [Recovered/Resolved]
  - Abdominal pain [Recovered/Resolved]
  - Somnolence [Recovered/Resolved]
  - Condition aggravated [Recovered/Resolved]
